FAERS Safety Report 16863016 (Version 2)
Quarter: 2020Q3

REPORT INFORMATION
  Report Type: Spontaneous
  Country: US (occurrence: US)
  Receive Date: 20190927
  Receipt Date: 20200702
  Transmission Date: 20201102
  Serious: Yes (Hospitalization, Other)
  Sender: FDA-Public Use
  Company Number: US-ELI_LILLY_AND_COMPANY-US201908011819

PATIENT
  Sex: Male

DRUGS (5)
  1. HUMALOG [Suspect]
     Active Substance: INSULIN LISPRO
     Dosage: 20 U, EACH EVENING
     Route: 065
  2. HUMALOG [Suspect]
     Active Substance: INSULIN LISPRO
     Indication: TYPE 2 DIABETES MELLITUS
     Dosage: 18 U, DAILY
     Route: 065
     Dates: start: 2000
  3. HUMALOG [Suspect]
     Active Substance: INSULIN LISPRO
     Dosage: 49 U, DAILY
     Route: 065
  4. HUMALOG [Suspect]
     Active Substance: INSULIN LISPRO
     Dosage: 16 U, EACH MORNING
     Route: 065
  5. HUMALOG [Suspect]
     Active Substance: INSULIN LISPRO
     Dosage: 18 U, DAILY AT LUNCH
     Route: 065

REACTIONS (6)
  - Peripheral vascular disorder [Unknown]
  - Postoperative wound infection [Unknown]
  - Renal failure [Unknown]
  - Respiratory failure [Unknown]
  - Contusion [Unknown]
  - Impaired healing [Unknown]

NARRATIVE: CASE EVENT DATE: 2019
